FAERS Safety Report 5003382-5 (Version None)
Quarter: 2006Q2

REPORT INFORMATION
  Report Type: 
  Country: None (occurrence: None)
  Receive Date: 20060511
  Receipt Date: 20060503
  Transmission Date: 20061013
  Serious: Yes (Other)
  Sender: FDA-Public Use
  Company Number: 2006059918

PATIENT
  Age: 52 Year
  Sex: Female

DRUGS (1)
  1. DILANTIN [Suspect]
     Indication: ILL-DEFINED DISORDER

REACTIONS (6)
  - COORDINATION ABNORMAL [None]
  - GAIT DISTURBANCE [None]
  - HEPATOMEGALY [None]
  - HYPOREFLEXIA [None]
  - NYSTAGMUS [None]
  - SENSORY DISTURBANCE [None]
